FAERS Safety Report 4823318-7 (Version None)
Quarter: 2005Q4

REPORT INFORMATION
  Report Type: 
  Country: None (occurrence: None)
  Receive Date: 20051107
  Receipt Date: 20051031
  Transmission Date: 20060501
  Serious: Yes (Other)
  Sender: FDA-Public Use
  Company Number: 2005138352

PATIENT

DRUGS (10)
  1. AMLODIPINE [Suspect]
     Indication: BLOOD PRESSURE ABNORMAL
     Dosage: 5 MG (DAILY),
  2. ATENOLOL [Suspect]
     Indication: BLOOD PRESSURE ABNORMAL
     Dosage: 50 MG (DAILY),
  3. NIFEDIPINE [Suspect]
     Indication: ILL-DEFINED DISORDER
  4. RIFAMPICIN [Suspect]
     Indication: TUBERCULOUS PLEURISY
  5. URAPIDIL (URAPIDIL) [Suspect]
     Indication: BLOOD PRESSURE ABNORMAL
     Dosage: 30 MG (DAILY),
  6. CANDESARTAN (CANDESARTAN) [Suspect]
     Indication: BLOOD PRESSURE ABNORMAL
     Dosage: 4 MG (DAILY),
  7. CILNIDIPINE (CILNIDIPINE) [Suspect]
     Indication: ILL-DEFINED DISORDER
  8. AROTINOLOL (AROTINOLOL) [Suspect]
     Indication: ILL-DEFINED DISORDER
  9. TEMOCAPRIL (TEMOCAPRIL) [Suspect]
     Indication: ILL-DEFINED DISORDER
  10. DOXAZOSIN MESYLATE [Concomitant]

REACTIONS (6)
  - BLOOD PRESSURE INCREASED [None]
  - DIALYSIS [None]
  - DRUG INTERACTION [None]
  - MALAISE [None]
  - OEDEMA [None]
  - TUBERCULOUS PLEURISY [None]
